FAERS Safety Report 6676760-6 (Version None)
Quarter: 2010Q2

REPORT INFORMATION
  Report Type: 
  Country: None (occurrence: None)
  Receive Date: 20100409
  Receipt Date: 20100409
  Transmission Date: 20101027
  Serious: Yes (Other)
  Sender: FDA-Public Use
  Company Number: None

PATIENT
  Age: 72 Year
  Sex: Female
  Weight: 128.8216 kg

DRUGS (1)
  1. MULTAQ [Suspect]
     Indication: ATRIAL FIBRILLATION
     Dosage: 400 MG Q 12? ORAL
     Route: 048
     Dates: start: 20090920, end: 20091214

REACTIONS (3)
  - ALOPECIA [None]
  - ONYCHOCLASIS [None]
  - TREMOR [None]
